FAERS Safety Report 8839504 (Version 1)
Quarter: 2012Q4

REPORT INFORMATION
  Report Type: 
  Country: US (occurrence: US)
  Receive Date: 20121015
  Receipt Date: 20121015
  Transmission Date: 20130627
  Serious: No
  Sender: FDA-Public Use
  Company Number: US-B.I. PHARMACEUTICALS,INC./RIDGEFIELD-2012-BP-23954BP

PATIENT
  Sex: Male

DRUGS (3)
  1. PRADAXA [Suspect]
     Indication: ATRIAL FIBRILLATION
     Route: 048
     Dates: start: 201111
  2. NEXIUM [Concomitant]
     Indication: DYSPEPSIA
     Dosage: 40 mg
     Route: 048
     Dates: start: 2010
  3. DILTIAZEM [Concomitant]
     Indication: ATRIAL FIBRILLATION
     Dosage: 120 mg
     Route: 048
     Dates: start: 20110926

REACTIONS (1)
  - Platelet count decreased [Not Recovered/Not Resolved]
